FAERS Safety Report 25597583 (Version 1)
Quarter: 2025Q3

REPORT INFORMATION
  Report Type: Spontaneous
  Country: US (occurrence: None)
  Receive Date: 20250723
  Receipt Date: 20250723
  Transmission Date: 20251021
  Serious: Yes (Other)
  Sender: FDA-CTU
  Company Number: None

PATIENT
  Age: 27 Year
  Sex: Female
  Weight: 60.75 kg

DRUGS (1)
  1. MONISTAT 1 COMBINATION PACK [Suspect]
     Active Substance: MICONAZOLE NITRATE
     Indication: Fungal infection
     Dosage: OTHER QUANTITY : 1 SUPPOSITORY(IES)?FREQUENCY : AT BEDTIM;?
     Dates: start: 20250722, end: 20250722

REACTIONS (3)
  - Vulvovaginal burning sensation [None]
  - Vulvovaginal pain [None]
  - Crying [None]

NARRATIVE: CASE EVENT DATE: 20250722
